FAERS Safety Report 4270094-5 (Version None)
Quarter: 2004Q1

REPORT INFORMATION
  Report Type: 
  Country: None (occurrence: None)
  Receive Date: 20040114
  Receipt Date: 20030304
  Transmission Date: 20041129
  Serious: No
  Sender: FDA-Public Use
  Company Number: US-GLAXOSMITHKLINE-A0398930A

PATIENT
  Age: 35 Year
  Sex: Male

DRUGS (3)
  1. WELLBUTRIN [Suspect]
     Indication: DEPRESSION
     Route: 048
     Dates: start: 20030127, end: 20030206
  2. PROPECIA [Concomitant]
  3. STRATTERA [Concomitant]
     Dates: start: 20030101, end: 20030201

REACTIONS (2)
  - INSOMNIA [None]
  - MUSCLE SPASMS [None]
